FAERS Safety Report 4355611-9 (Version None)
Quarter: 2004Q2

REPORT INFORMATION
  Report Type: 
  Country: None (occurrence: None)
  Receive Date: 20040505
  Receipt Date: 20040429
  Transmission Date: 20050107
  Serious: Yes (Hospitalization)
  Sender: FDA-Public Use
  Company Number: 200403624

PATIENT
  Age: 29 Year
  Sex: Female

DRUGS (1)
  1. EXTRA STRENGTH TYLENOL [Suspect]
     Indication: SUICIDE ATTEMPT
     Dosage: LARGE DOSE
     Dates: start: 20040418, end: 20040418

REACTIONS (4)
  - INCOHERENT [None]
  - INTENTIONAL OVERDOSE [None]
  - SPEECH DISORDER [None]
  - SUICIDE ATTEMPT [None]
